FAERS Safety Report 24724147 (Version 1)
Quarter: 2024Q4

REPORT INFORMATION
  Report Type: Spontaneous
  Country: HR (occurrence: HR)
  Receive Date: 20241211
  Receipt Date: 20241211
  Transmission Date: 20250115
  Serious: Yes (Other)
  Sender: GLAXOSMITHKLINE
  Company Number: None

PATIENT

DRUGS (1)
  1. WELLBUTRIN [Suspect]
     Active Substance: BUPROPION HYDROCHLORIDE
     Indication: Product used for unknown indication
     Dosage: 11 DF, QD (DRANK 10-11 TABLETS OF WELLBUTRIN)
     Route: 048
     Dates: start: 20241022, end: 20241022

REACTIONS (6)
  - Hypotension [Unknown]
  - Aggression [Unknown]
  - Epilepsy [Unknown]
  - Confusional state [Unknown]
  - Somnolence [Unknown]
  - Intentional overdose [Unknown]

NARRATIVE: CASE EVENT DATE: 20241022
